FAERS Safety Report 18762704 (Version 1)
Quarter: 2021Q1

REPORT INFORMATION
  Report Type: Spontaneous
  Country: US (occurrence: US)
  Receive Date: 20210120
  Receipt Date: 20210120
  Transmission Date: 20210419
  Serious: No
  Sender: FDA-Public Use
  Company Number: US-INSMED, INC.-US-INS-20-02131

PATIENT
  Age: 41 Year
  Sex: Female

DRUGS (1)
  1. ARIKAYCE [Suspect]
     Active Substance: AMIKACIN
     Indication: MYCOBACTERIAL INFECTION
     Route: 055
     Dates: start: 20201020

REACTIONS (3)
  - Nausea [Unknown]
  - Therapy interrupted [Unknown]
  - Vomiting [Unknown]

NARRATIVE: CASE EVENT DATE: 20201020
